FAERS Safety Report 5506341-9 (Version None)
Quarter: 2007Q4

REPORT INFORMATION
  Report Type: 
  Country: None (occurrence: None)
  Receive Date: 20071105
  Receipt Date: 20071025
  Transmission Date: 20080405
  Serious: Yes (Hospitalization)
  Sender: FDA-Public Use
  Company Number: US-AVENTIS-200717516US

PATIENT
  Sex: Female

DRUGS (6)
  1. LOVENOX [Suspect]
     Dosage: DOSE: UNK
     Dates: start: 20070724
  2. REVLIMID [Suspect]
     Indication: MULTIPLE MYELOMA
     Route: 048
     Dates: start: 20070605, end: 20070626
  3. REVLIMID [Suspect]
     Route: 048
     Dates: start: 20070703
  4. ASPIRIN [Suspect]
     Route: 048
     Dates: start: 20070614, end: 20070824
  5. DECADRON [Concomitant]
     Indication: MULTIPLE MYELOMA
     Dosage: DOSE: UNK
     Dates: start: 20070703
  6. SENOKOT                            /00142201/ [Concomitant]
     Dosage: DOSE: UNK

REACTIONS (12)
  - ASTHENIA [None]
  - BACK PAIN [None]
  - BLINDNESS [None]
  - DIARRHOEA [None]
  - HAEMORRHAGE INTRACRANIAL [None]
  - HEADACHE [None]
  - HEMIPARESIS [None]
  - HYPERCALCAEMIA [None]
  - INFECTION [None]
  - PYREXIA [None]
  - SEPSIS [None]
  - SPEECH DISORDER [None]
